FAERS Safety Report 8257704-2 (Version None)
Quarter: 2012Q2

REPORT INFORMATION
  Report Type: 
  Country: None (occurrence: None)
  Receive Date: 20120403
  Receipt Date: 20120321
  Transmission Date: 20120825
  Serious: Yes (Hospitalization, Other)
  Sender: FDA-Public Use
  Company Number: JP-MYLANLABS-2011S1018315

PATIENT
  Age: 82 Year
  Sex: Female

DRUGS (10)
  1. AMSULMYLAN [Suspect]
     Indication: ENDOCARDITIS
     Route: 041
     Dates: start: 20110504, end: 20110526
  2. AMPICILLIN [Concomitant]
     Indication: PRODUCT USED FOR UNKNOWN INDICATION
     Route: 042
     Dates: start: 20110504, end: 20110509
  3. OMEPRAZOLE [Concomitant]
     Indication: PRODUCT USED FOR UNKNOWN INDICATION
     Route: 042
     Dates: start: 20110502, end: 20110508
  4. CEFMETAZOLE [Concomitant]
     Indication: PRODUCT USED FOR UNKNOWN INDICATION
     Route: 042
     Dates: start: 20110502
  5. DALACIN /00166002/ [Concomitant]
     Indication: ENDOCARDITIS
     Route: 042
     Dates: start: 20110525, end: 20110602
  6. CEFAZOLIN SODIUM [Suspect]
     Indication: ENDOCARDITIS
     Route: 042
     Dates: start: 20110525, end: 20110614
  7. VITAMEDIN /00176001/ [Concomitant]
     Indication: PRODUCT USED FOR UNKNOWN INDICATION
     Route: 042
     Dates: start: 20110502, end: 20110508
  8. HEPARIN [Concomitant]
     Indication: PRODUCT USED FOR UNKNOWN INDICATION
     Route: 042
     Dates: start: 20110503, end: 20110506
  9. GENTAMICIN [Concomitant]
     Indication: PRODUCT USED FOR UNKNOWN INDICATION
     Route: 042
     Dates: start: 20110504
  10. ACETAMINOPHEN [Concomitant]
     Indication: PRODUCT USED FOR UNKNOWN INDICATION
     Route: 048

REACTIONS (6)
  - GRANULOCYTOPENIA [None]
  - DRUG ERUPTION [None]
  - STAPHYLOCOCCAL INFECTION [None]
  - CEREBELLAR EMBOLISM [None]
  - ABSCESS INTESTINAL [None]
  - ASCITES [None]
